FAERS Safety Report 4423845-0 (Version None)
Quarter: 2004Q3

REPORT INFORMATION
  Report Type: 
  Country: None (occurrence: None)
  Receive Date: 20040714
  Receipt Date: 20031119
  Transmission Date: 20050211
  Serious: Yes (Hospitalization)
  Sender: FDA-Public Use
  Company Number: 200318894US

PATIENT

DRUGS (1)
  1. TAXOTERE [Suspect]
     Indication: BREAST CANCER
     Dosage: 45 MG Q3W
     Dates: start: 20030206, end: 20031007

REACTIONS (1)
  - PLEURAL EFFUSION [None]
